FAERS Safety Report 5611467-5 (Version None)
Quarter: 2008Q1

REPORT INFORMATION
  Report Type: 
  Country: None (occurrence: None)
  Receive Date: 20080201
  Receipt Date: 20080122
  Transmission Date: 20080703
  Serious: Yes (Other)
  Sender: FDA-Public Use
  Company Number: PT-PFIZER INC-2008005959

PATIENT
  Sex: Female

DRUGS (4)
  1. CHANTIX [Suspect]
     Indication: SMOKING CESSATION THERAPY
     Route: 048
     Dates: start: 20071226, end: 20080111
  2. CHANTIX [Interacting]
     Route: 048
  3. CHANTIX [Interacting]
     Route: 048
  4. HARMONET [Interacting]
     Indication: CONTRACEPTION

REACTIONS (3)
  - DRUG INEFFECTIVE [None]
  - DRUG INTERACTION [None]
  - UNINTENDED PREGNANCY [None]
